FAERS Safety Report 8542577-0 (Version None)
Quarter: 2012Q3

REPORT INFORMATION
  Report Type: 
  Country: None (occurrence: None)
  Receive Date: 20120726
  Receipt Date: 20120719
  Transmission Date: 20120928
  Serious: Yes (Death, Hospitalization, Other)
  Sender: FDA-Public Use
  Company Number: PT-GILEAD-2012-0050515

PATIENT
  Sex: Male

DRUGS (8)
  1. HEPSERA [Suspect]
     Indication: HEPATITIS B
  2. AMLODIPINA                         /00972401/ [Concomitant]
  3. VIREAD [Suspect]
     Indication: HEPATITIS B
     Dosage: UNK
     Dates: start: 20101101, end: 20111101
  4. VIREAD [Suspect]
     Dosage: 1 DF, QOD
     Dates: start: 20120501
  5. ASPIRIN [Concomitant]
  6. BISOPROLOL FUMARATE [Concomitant]
  7. VALSARTAN [Concomitant]
  8. VALPROATO DE MAGNESIO              /00017402/ [Concomitant]

REACTIONS (6)
  - VIRAL LOAD INCREASED [None]
  - HEPATITIS FULMINANT [None]
  - FANCONI SYNDROME [None]
  - RENAL IMPAIRMENT [None]
  - RESPIRATORY FAILURE [None]
  - RENAL FAILURE [None]
